FAERS Safety Report 8762003 (Version 8)
Quarter: 2013Q1

REPORT INFORMATION
  Report Type: Spontaneous
  Country: BR (occurrence: BR)
  Receive Date: 20120829
  Receipt Date: 20130318
  Transmission Date: 20140127
  Serious: Yes (Hospitalization, Disabling, Other)
  Sender: FDA-Public Use
  Company Number: BR-PFIZER INC-2012164870

PATIENT
  Age: 38 Year
  Sex: Female
  Weight: 69 kg

DRUGS (13)
  1. TRAMAL [Suspect]
     Indication: SPINAL PAIN
     Dosage: ONE CAPSULE (STRENGTH 50 MG), EVERY 8 HOURS
     Route: 048
     Dates: start: 2007, end: 201207
  2. TRAMAL [Suspect]
     Indication: ARTHRODESIS
     Dosage: EVERY 6 HOURS
  3. TRAMAL [Suspect]
     Indication: PAIN
  4. LYRICA [Suspect]
     Indication: SPINAL PAIN
     Dosage: 75 MG, 2X/DAY (75 MG, 2 CAPSULES/DAY, IN THE MORNING AND AT NIGHT)
     Route: 048
     Dates: start: 201108, end: 201201
  5. LYRICA [Suspect]
     Indication: NEURALGIA
     Dosage: 150 MG, 2X/DAY (150 MG, 2 CAPSULES/DAY (IN THE MORNING AND AT NIGHT))
     Route: 048
     Dates: start: 201201
  6. CELEBRA [Suspect]
     Indication: SPINAL PAIN
     Dosage: ONE CAPSULE DAILY
     Route: 048
     Dates: start: 201207
  7. CELEBRA [Suspect]
     Indication: ANTIINFLAMMATORY THERAPY
  8. CELEBRA [Suspect]
     Indication: SPINAL PAIN
  9. PRISTIQ [Concomitant]
     Indication: DEPRESSION
     Dosage: UNK
  10. CARBOLITIUM [Concomitant]
     Indication: DEPRESSION
     Dosage: STRENGTH 300MG
     Route: 048
  11. RIVOTRIL [Concomitant]
     Indication: DEPRESSION
     Dosage: 2 MG AT NIGHT
     Dates: start: 201104
  12. RIVOTRIL [Concomitant]
     Indication: ANXIETY
  13. SERTRALINE [Concomitant]
     Indication: DEPRESSION
     Dosage: 1 TABLET (50MG) IN THE MORNING
     Dates: start: 2010

REACTIONS (12)
  - Intervertebral disc protrusion [Not Recovered/Not Resolved]
  - Nerve root compression [Unknown]
  - Pain [Unknown]
  - Spinal pain [Unknown]
  - Balance disorder [Unknown]
  - Dysstasia [Unknown]
  - Spinal disorder [Unknown]
  - Fall [Unknown]
  - Spinal fracture [Unknown]
  - Drug ineffective [Not Recovered/Not Resolved]
  - Chills [Not Recovered/Not Resolved]
  - Somnolence [Unknown]
